FAERS Safety Report 10507783 (Version 1)
Quarter: 2014Q4

REPORT INFORMATION
  Report Type: Spontaneous
  Country: DK (occurrence: DE)
  Receive Date: 20141009
  Receipt Date: 20141009
  Transmission Date: 20150528
  Serious: Yes (Other)
  Sender: FDA-Public Use
  Company Number: DE-FRI-1000071344

PATIENT
  Age: 2 Month
  Sex: Male

DRUGS (1)
  1. ESCITALOPRAM [Suspect]
     Active Substance: ESCITALOPRAM OXALATE
     Dosage: 8 MG
     Route: 063

REACTIONS (2)
  - Exposure during breast feeding [Recovered/Resolved]
  - Transaminases increased [Recovered/Resolved]
